FAERS Safety Report 5063935-5 (Version None)
Quarter: 2006Q3

REPORT INFORMATION
  Report Type: 
  Country: None (occurrence: None)
  Receive Date: 20060703
  Receipt Date: 20050916
  Transmission Date: 20061208
  Serious: No
  Sender: FDA-Public Use
  Company Number: 2005S1009530

PATIENT
  Age: 46 Year
  Sex: Male

DRUGS (9)
  1. CLOZAPINE [Suspect]
     Indication: SCHIZOPHRENIA
     Dosage: 400 MG;HS;PO
     Route: 048
     Dates: start: 20050401, end: 20050913
  2. ALPRAZOLAM [Concomitant]
  3. VALPROATE SODIUM [Concomitant]
  4. LEVOTHYROXINE SODIUM [Concomitant]
  5. FOLIC ACID [Concomitant]
  6. SPIRONOLACTONE [Concomitant]
  7. RANITIDINE [Concomitant]
  8. POTASSIUM CHLORIDE [Concomitant]
  9. FUROSEMIDE [Concomitant]

REACTIONS (1)
  - GRANULOCYTOPENIA [None]
